FAERS Safety Report 5169146-7 (Version None)
Quarter: 2006Q4

REPORT INFORMATION
  Report Type: 
  Country: None (occurrence: None)
  Receive Date: 20061211
  Receipt Date: 20060110
  Transmission Date: 20070319
  Serious: No
  Sender: FDA-Public Use
  Company Number: US-BRISTOL-MYERS SQUIBB COMPANY-13242565

PATIENT
  Age: 25 Year
  Sex: Male
  Weight: 122 kg

DRUGS (3)
  1. PROLIXIN [Suspect]
     Indication: POST-TRAUMATIC STRESS DISORDER
     Dates: start: 20040601
  2. ZOLOFT [Concomitant]
  3. RISPERDAL [Concomitant]

REACTIONS (2)
  - MUSCLE SPASMS [None]
  - WEIGHT INCREASED [None]
